FAERS Safety Report 16165393 (Version 1)
Quarter: 2019Q2

REPORT INFORMATION
  Report Type: Report from Study
  Country: CO (occurrence: CO)
  Receive Date: 20190405
  Receipt Date: 20190405
  Transmission Date: 20190711
  Serious: Yes (Death)
  Sender: FDA-Public Use
  Company Number: PHHY2019CO078457

PATIENT
  Age: 68 Year
  Sex: Female

DRUGS (1)
  1. REVOLADE [Suspect]
     Active Substance: ELTROMBOPAG
     Indication: APLASTIC ANAEMIA
     Dosage: 100 MG, QD
     Route: 048
     Dates: start: 20181212

REACTIONS (1)
  - Death [Fatal]

NARRATIVE: CASE EVENT DATE: 20190223
